FAERS Safety Report 8987537 (Version 1)
Quarter: 2012Q4

REPORT INFORMATION
  Report Type: 
  Country: JP (occurrence: JP)
  Receive Date: 20121227
  Receipt Date: 20121227
  Transmission Date: 20130627
  Serious: Yes (Death, Hospitalization, Other)
  Sender: FDA-Public Use
  Company Number: JP-ROCHE-1142257

PATIENT
  Age: 64 None
  Sex: Male
  Weight: 53 kg

DRUGS (9)
  1. AVASTIN [Suspect]
     Indication: LUNG ADENOCARCINOMA RECURRENT
     Route: 041
     Dates: start: 20120425, end: 20120725
  2. PACLITAXEL [Suspect]
     Indication: LUNG ADENOCARCINOMA RECURRENT
     Dosage: Dosage is uncertain.
     Route: 041
     Dates: start: 20070409, end: 20080623
  3. PACLITAXEL [Suspect]
     Indication: LUNG ADENOCARCINOMA RECURRENT
     Dosage: Dosage is uncertain.
     Route: 041
     Dates: start: 20091008, end: 20100804
  4. PACLITAXEL [Suspect]
     Indication: LUNG ADENOCARCINOMA RECURRENT
     Route: 041
     Dates: start: 20120425, end: 20120725
  5. CARBOPLATIN [Concomitant]
     Indication: LUNG ADENOCARCINOMA RECURRENT
     Dosage: Dosage is uncertain.
     Route: 041
     Dates: start: 20070409, end: 20080623
  6. CARBOPLATIN [Concomitant]
     Indication: LUNG ADENOCARCINOMA RECURRENT
     Dosage: Dosage is uncertain.
     Route: 041
     Dates: start: 20080725, end: 20081117
  7. CARBOPLATIN [Concomitant]
     Indication: LUNG ADENOCARCINOMA RECURRENT
     Dosage: Dosage is uncertain.
     Route: 041
     Dates: start: 20090517, end: 20091007
  8. CARBOPLATIN [Concomitant]
     Indication: LUNG ADENOCARCINOMA RECURRENT
     Dosage: Dosage is uncertain.
     Route: 041
     Dates: start: 20091008, end: 20100804
  9. CARBOPLATIN [Concomitant]
     Indication: LUNG ADENOCARCINOMA RECURRENT
     Route: 041
     Dates: start: 20120425, end: 20120725

REACTIONS (5)
  - Disease progression [Fatal]
  - Anaemia [Recovering/Resolving]
  - Epistaxis [Recovered/Resolved]
  - Fibrin D dimer increased [Unknown]
  - Mucous membrane disorder [Unknown]
